FAERS Safety Report 6348374-9 (Version None)
Quarter: 2009Q3

REPORT INFORMATION
  Report Type: 
  Country: None (occurrence: None)
  Receive Date: 20090908
  Receipt Date: 20090820
  Transmission Date: 20100115
  Serious: Yes (Hospitalization)
  Sender: FDA-Public Use
  Company Number: 2009AL002556

PATIENT
  Age: 84 Year
  Sex: Female

DRUGS (3)
  1. DIGOXIN [Suspect]
     Dosage: PO
     Route: 048
  2. ASPIRIN [Concomitant]
  3. AROMASIN [Concomitant]

REACTIONS (15)
  - ABDOMINAL PAIN UPPER [None]
  - ANXIETY [None]
  - BLOOD PRESSURE SYSTOLIC INCREASED [None]
  - BREAST CANCER [None]
  - CARDIAC DISORDER [None]
  - DECREASED APPETITE [None]
  - DIVERTICULUM [None]
  - GASTRIC ULCER [None]
  - GASTRITIS [None]
  - HAEMORRHOIDS [None]
  - INJURY [None]
  - IRON DEFICIENCY ANAEMIA [None]
  - OESOPHAGITIS [None]
  - SEROMA [None]
  - TENDERNESS [None]
